FAERS Safety Report 10403566 (Version 6)
Quarter: 2015Q3

REPORT INFORMATION
  Report Type: Report from Study
  Country: US (occurrence: US)
  Receive Date: 20140822
  Receipt Date: 20150806
  Transmission Date: 20151125
  Serious: Yes (Death, Hospitalization, Other)
  Sender: FDA-Public Use
  Company Number: US-GILEAD-2014-0112779

PATIENT
  Age: 59 Year
  Sex: Male
  Weight: 107.3 kg

DRUGS (4)
  1. REVATIO [Concomitant]
     Active Substance: SILDENAFIL CITRATE
  2. AMBRISENTAN [Suspect]
     Active Substance: AMBRISENTAN
     Indication: PULMONARY HYPERTENSION
     Dosage: 10 MG, QD
     Route: 065
     Dates: start: 20140711, end: 20140806
  3. SILDENAFIL. [Concomitant]
     Active Substance: SILDENAFIL
  4. REMODULIN [Suspect]
     Active Substance: TREPROSTINIL
     Indication: COR PULMONALE CHRONIC
     Dosage: 0.002 ?G/KG, UNK
     Route: 058
     Dates: start: 20140714, end: 20140819

REACTIONS (5)
  - Oedema [Fatal]
  - Chronic hepatic failure [Fatal]
  - Hypotension [Fatal]
  - Ascites [Fatal]
  - Umbilical hernia perforation [Fatal]

NARRATIVE: CASE EVENT DATE: 20140806
